FAERS Safety Report 9631532 (Version 1)
Quarter: 2013Q4

REPORT INFORMATION
  Report Type: Spontaneous
  Country: JP (occurrence: None)
  Receive Date: 20131015
  Receipt Date: 20131015
  Transmission Date: 20140711
  Serious: Yes (Death)
  Sender: FDA-Public Use
  Company Number: 2013KR002610

PATIENT
  Sex: Male

DRUGS (4)
  1. ICLUSIG [Suspect]
     Indication: LEUKAEMIA
     Route: 048
  2. MTX [Concomitant]
  3. CYTARABINE (CYTARABINE) [Concomitant]
  4. HYDROCORTISONE (HYDROCORTISONE HYDROGEN SUCCINATE) [Concomitant]

REACTIONS (4)
  - Somnolence [None]
  - Pyrexia [None]
  - Aspartate aminotransferase increased [None]
  - Alanine aminotransferase increased [None]
